FAERS Safety Report 7625749-9 (Version None)
Quarter: 2011Q3

REPORT INFORMATION
  Report Type: 
  Country: None (occurrence: None)
  Receive Date: 20110721
  Receipt Date: 20110718
  Transmission Date: 20111222
  Serious: No
  Sender: FDA-Public Use
  Company Number: US-B.I. PHARMACEUTICALS,INC./RIDGEFIELD-2011-BP-17994BP

PATIENT
  Sex: Female

DRUGS (8)
  1. ACTONEL [Concomitant]
     Indication: OSTEOARTHRITIS
     Route: 048
  2. ZOCOR [Concomitant]
     Indication: BLOOD CHOLESTEROL INCREASED
     Route: 048
  3. SYNTHROID [Concomitant]
     Indication: HYPOTHYROIDISM
     Route: 048
  4. ASPIRIN [Concomitant]
     Indication: CAROTID ARTERY STENOSIS
     Dosage: 81 MG
     Route: 048
  5. SANCTURA [Concomitant]
     Indication: INCONTINENCE
     Dosage: 60 MG
     Route: 048
  6. MULTI-VITAMIN [Concomitant]
     Indication: SUPPLEMENTATION THERAPY
     Route: 048
  7. TYLENOL-500 [Concomitant]
     Indication: OSTEOARTHRITIS
     Dosage: 650 MG
     Route: 048
  8. PRADAXA [Suspect]
     Indication: ATRIAL FIBRILLATION
     Dosage: 300 MG
     Route: 048
     Dates: start: 20101212

REACTIONS (2)
  - HEADACHE [None]
  - EAR PAIN [None]
